FAERS Safety Report 14238100 (Version 1)
Quarter: 2017Q4

REPORT INFORMATION
  Report Type: Spontaneous
  Country: FR (occurrence: FR)
  Receive Date: 20171130
  Receipt Date: 20171130
  Transmission Date: 20180321
  Serious: Yes (Other)
  Sender: FDA-Public Use
  Company Number: FR-MERCK KGAA-2036353

PATIENT
  Sex: Female

DRUGS (1)
  1. NOVOTHYROX [Suspect]
     Active Substance: LEVOTHYROXINE SODIUM
     Indication: POST PROCEDURAL HYPOTHYROIDISM

REACTIONS (6)
  - Dizziness [None]
  - Irritable bowel syndrome [None]
  - Hypothyroidism [Recovered/Resolved]
  - Sleep disorder [None]
  - Hyperthyroidism [Recovered/Resolved]
  - Weight gain poor [None]
